FAERS Safety Report 6156852-0 (Version None)
Quarter: 2009Q2

REPORT INFORMATION
  Report Type: 
  Country: None (occurrence: None)
  Receive Date: 20090416
  Receipt Date: 20090414
  Transmission Date: 20091009
  Serious: Yes (Hospitalization, Disabling)
  Sender: FDA-Public Use
  Company Number: US-BRISTOL-MYERS SQUIBB COMPANY-14492748

PATIENT
  Age: 41 Year
  Sex: Male

DRUGS (10)
  1. EFAVIRENZ [Suspect]
     Route: 048
  2. STAVUDINE [Suspect]
     Route: 048
  3. RALTEGRAVIR [Suspect]
     Route: 048
  4. LAMIVUDINE [Suspect]
     Route: 048
  5. LOPINAVIR AND RITONAVIR [Suspect]
     Route: 048
  6. TENOFOVIR DISOPROXIL FUMARATE [Suspect]
     Route: 048
  7. RITONAVIR [Suspect]
     Route: 048
  8. EMTRICITABINE AND TENOFOVIR DISOPROXIL FUMARATE [Suspect]
     Route: 048
  9. DARUNAVIR [Suspect]
     Route: 048
  10. ENFUVIRTIDE [Suspect]
     Route: 048

REACTIONS (7)
  - ABDOMINAL PAIN [None]
  - AIDS ENCEPHALOPATHY [None]
  - BLOOD ALKALINE PHOSPHATASE INCREASED [None]
  - DEPRESSION [None]
  - FALL [None]
  - MOVEMENT DISORDER [None]
  - STRESS [None]
